FAERS Safety Report 6653615-4 (Version None)
Quarter: 2010Q1

REPORT INFORMATION
  Report Type: 
  Country: None (occurrence: None)
  Receive Date: 20100324
  Receipt Date: 20091222
  Transmission Date: 20100710
  Serious: Yes (Other)
  Sender: FDA-Public Use
  Company Number: AUR-APL-2010-00746

PATIENT
  Sex: Female
  Weight: 3.32 kg

DRUGS (4)
  1. ZIDOVUDINE [Suspect]
     Indication: HIV INFECTION
     Dosage: TRANSPLACENT
     Route: 064
     Dates: start: 20060626
  2. NELFINAVIR MESYLATE [Suspect]
     Indication: HIV INFECTION
     Dosage: TRANSPLACENT
     Route: 064
     Dates: start: 20060626
  3. LAMIVUDINE [Suspect]
     Indication: HIV INFECTION
     Dosage: TRANSPLACENT
     Route: 064
     Dates: start: 20060626
  4. .. [Concomitant]

REACTIONS (2)
  - INGUINAL HERNIA [None]
  - MATERNAL DRUGS AFFECTING FOETUS [None]
